FAERS Safety Report 15645654 (Version 1)
Quarter: 2018Q4

REPORT INFORMATION
  Report Type: Spontaneous
  Country: US (occurrence: US)
  Receive Date: 20181121
  Receipt Date: 20181121
  Transmission Date: 20190205
  Serious: No
  Sender: FDA-Public Use
  Company Number: US-GLAXOSMITHKLINE-US2018203247

PATIENT
  Age: 85 Year
  Sex: Female

DRUGS (3)
  1. TRELEGY ELLIPTA [Suspect]
     Active Substance: FLUTICASONE FUROATE\UMECLIDINIUM BROMIDE\VILANTEROL TRIFENATATE
     Indication: CHRONIC OBSTRUCTIVE PULMONARY DISEASE
     Dosage: UNK
     Dates: start: 20181003, end: 20181006
  2. BREO ELLIPTA [Suspect]
     Active Substance: FLUTICASONE FUROATE\VILANTEROL TRIFENATATE
     Indication: CHRONIC OBSTRUCTIVE PULMONARY DISEASE
     Dosage: UNK
     Dates: start: 20181019, end: 20181024
  3. TUDORZA [Concomitant]
     Active Substance: ACLIDINIUM BROMIDE

REACTIONS (11)
  - Impatience [Recovered/Resolved]
  - Sinusitis [Recovered/Resolved]
  - Gait disturbance [Recovered/Resolved]
  - Urine output decreased [Recovered/Resolved]
  - Sneezing [Recovered/Resolved]
  - Change of bowel habit [Recovered/Resolved]
  - Ill-defined disorder [Recovered/Resolved]
  - Rhinorrhoea [Recovered/Resolved]
  - Balance disorder [Recovered/Resolved]
  - Cough [Recovered/Resolved]
  - Wheezing [Recovered/Resolved]

NARRATIVE: CASE EVENT DATE: 20181003
